FAERS Safety Report 8976520 (Version 1)
Quarter: 2012Q4

REPORT INFORMATION
  Report Type: 
  Country: US (occurrence: US)
  Receive Date: 20121219
  Receipt Date: 20121219
  Transmission Date: 20130627
  Serious: No
  Sender: FDA-Public Use
  Company Number: US-AMGEN-USASP2012061839

PATIENT
  Age: 54 Year
  Sex: Female
  Weight: 68.03 kg

DRUGS (9)
  1. PROLIA [Suspect]
     Indication: OSTEOPOROSIS POSTMENOPAUSAL
     Dosage: UNK
     Dates: start: 201204
  2. CALTRATE                           /00944201/ [Concomitant]
  3. VALTREX [Concomitant]
     Dosage: UNK
  4. ZOLOFT [Concomitant]
     Dosage: UNK
     Dates: start: 2012
  5. WELLBUTRIN [Concomitant]
     Dates: start: 201209
  6. MULTIVITAMIN                       /00097801/ [Concomitant]
  7. BABY ASPIRIN [Concomitant]
  8. CRANBERRY                          /01512301/ [Concomitant]
  9. FIBER CHOICE PLUS CALCIUM [Concomitant]

REACTIONS (4)
  - Device failure [Not Recovered/Not Resolved]
  - Tooth fracture [Not Recovered/Not Resolved]
  - Weight increased [Unknown]
  - Arthralgia [Unknown]
